FAERS Safety Report 19275471 (Version 2)
Quarter: 2021Q2

REPORT INFORMATION
  Report Type: Spontaneous
  Country: DE (occurrence: DE)
  Receive Date: 20210519
  Receipt Date: 20210603
  Transmission Date: 20210717
  Serious: Yes (Other)
  Sender: FDA-Public Use
  Company Number: DE-JNJFOC-20210518050

PATIENT
  Age: 63 Year
  Sex: Male

DRUGS (16)
  1. METOPROLOL. [Suspect]
     Active Substance: METOPROLOL
     Indication: PRODUCT USED FOR UNKNOWN INDICATION
     Dosage: 47 (1 TABLET MIX?UP)
     Route: 048
     Dates: start: 20210409
  2. ORFIRIL [Suspect]
     Active Substance: VALPROATE SODIUM
     Dosage: 300 (3 TABLET)
     Route: 048
  3. ORFIRIL [Suspect]
     Active Substance: VALPROATE SODIUM
     Dosage: 500 (1 TABLET)
     Route: 048
  4. VIGANTOL [COLECALCIFEROL] [Suspect]
     Active Substance: CHOLECALCIFEROL
     Indication: PRODUCT USED FOR UNKNOWN INDICATION
     Dosage: 1 TABLET MIX?UP
     Route: 048
     Dates: start: 20210409, end: 20210409
  5. LAMOTRIGIN [Concomitant]
     Active Substance: LAMOTRIGINE
     Indication: PRODUCT USED FOR UNKNOWN INDICATION
     Dosage: 5 TABLET, 1 /DAY (25)
     Route: 048
  6. HALOPERIDOL. [Suspect]
     Active Substance: HALOPERIDOL
     Indication: PRODUCT USED FOR UNKNOWN INDICATION
     Dosage: 5 (1 TABLET MIX?UP)
     Route: 048
     Dates: start: 20210409, end: 20210409
  7. ORFIRIL [Suspect]
     Active Substance: VALPROATE SODIUM
     Indication: PRODUCT USED FOR UNKNOWN INDICATION
     Dosage: 1 TABLET MIX?UP
     Route: 048
     Dates: start: 20210409, end: 20210409
  8. CLOZAPINE. [Suspect]
     Active Substance: CLOZAPINE
     Indication: PRODUCT USED FOR UNKNOWN INDICATION
     Dosage: 100 (1 TABLET MIX?UP)
     Route: 048
     Dates: start: 20210409, end: 20210409
  9. LAMOTRIGIN [Concomitant]
     Active Substance: LAMOTRIGINE
     Dosage: 2 TABLET, 1 /DAY (100)
     Route: 048
     Dates: start: 20210409, end: 20210409
  10. DIPIPERON [Suspect]
     Active Substance: PIPAMPERONE
     Indication: PRODUCT USED FOR UNKNOWN INDICATION
     Dosage: 1 TABLET MIX?UP
     Route: 048
     Dates: start: 20210409, end: 20210409
  11. PANTOPRAZOLE [Suspect]
     Active Substance: PANTOPRAZOLE
     Indication: PRODUCT USED FOR UNKNOWN INDICATION
     Dosage: 1 TABLET MIX?UP
     Route: 048
     Dates: start: 20210409, end: 20210409
  12. AKINETON [Suspect]
     Active Substance: BIPERIDEN HYDROCHLORIDE
     Indication: PRODUCT USED FOR UNKNOWN INDICATION
     Dosage: 4 (1 TABLET MIX?UP)
     Route: 048
     Dates: start: 20210409, end: 20210409
  13. GASTROZEPIN [Concomitant]
     Active Substance: PIRENZEPINE HYDROCHLORIDE
     Indication: PRODUCT USED FOR UNKNOWN INDICATION
     Dosage: (50)1 TABLET, 1 /DAY
     Route: 048
  14. METOPROLOL. [Suspect]
     Active Substance: METOPROLOL
     Dosage: 5 MILLIGRAM (1 TABLET MIX?UP)
     Route: 048
  15. TEGRETAL RETARD [Concomitant]
     Active Substance: CARBAMAZEPINE
     Indication: PRODUCT USED FOR UNKNOWN INDICATION
     Dosage: 1 TABLET, 2 /DAY (200)
     Route: 048
  16. LEVETIRACETAM. [Concomitant]
     Active Substance: LEVETIRACETAM
     Indication: PRODUCT USED FOR UNKNOWN INDICATION
     Dosage: 2.5 TABLET, 1 /DAY (1000 MG)
     Route: 048

REACTIONS (7)
  - Generalised tonic-clonic seizure [Recovered/Resolved]
  - Sopor [Recovering/Resolving]
  - Disorientation [Recovering/Resolving]
  - Exposure via ingestion [Unknown]
  - Wrong patient received product [Unknown]
  - Seizure [Recovering/Resolving]
  - Accidental exposure to product [Unknown]

NARRATIVE: CASE EVENT DATE: 20210409
